FAERS Safety Report 12124153 (Version 1)
Quarter: 2016Q1

REPORT INFORMATION
  Report Type: Spontaneous
  Country: US (occurrence: US)
  Receive Date: 20160228
  Receipt Date: 20160228
  Transmission Date: 20160526
  Serious: No
  Sender: FDA-Public Use
  Company Number: US-TEVA-634028USA

PATIENT
  Age: 64 Year

DRUGS (3)
  1. AZILECT [Suspect]
     Active Substance: RASAGILINE MESYLATE
     Indication: PARKINSON^S DISEASE
     Dosage: .5 MILLIGRAM DAILY;
  2. MIRAPEXIN [Concomitant]
     Active Substance: PRAMIPEXOLE
  3. MADOPAR [Concomitant]
     Active Substance: BENSERAZIDE HYDROCHLORIDE\LEVODOPA

REACTIONS (2)
  - Confusional state [Unknown]
  - Fatigue [Unknown]
